FAERS Safety Report 8132069-5 (Version None)
Quarter: 2012Q1

REPORT INFORMATION
  Report Type: 
  Country: None (occurrence: None)
  Receive Date: 20120213
  Receipt Date: 20120209
  Transmission Date: 20120608
  Serious: Yes (Other)
  Sender: FDA-Public Use
  Company Number: DE-PFIZER INC-2011292119

PATIENT
  Age: 54 Year
  Sex: Male
  Weight: 75 kg

DRUGS (2)
  1. SUTENT [Suspect]
     Dosage: 50 MG, 1X/DAY
     Route: 048
     Dates: start: 20111115
  2. SUTENT [Suspect]
     Dosage: UNK
     Route: 048

REACTIONS (3)
  - EYELID OEDEMA [None]
  - LABORATORY TEST ABNORMAL [None]
  - TERMINAL STATE [None]
